FAERS Safety Report 16810780 (Version 1)
Quarter: 2019Q4

REPORT INFORMATION
  Report Type: Spontaneous
  Country: US (occurrence: US)
  Receive Date: 20190916
  Receipt Date: 20190916
  Transmission Date: 20200122
  Serious: Yes (Disabling, Other)
  Sender: FDA-Public Use
  Company Number: None

PATIENT
  Age: 59 Year
  Sex: Male
  Weight: 95.4 kg

DRUGS (7)
  1. METFORMIN 500MG 2 TAB BID [Concomitant]
     Dates: start: 20181130
  2. RANITIDINE 150MG BID [Concomitant]
  3. TRULICITY [Suspect]
     Active Substance: DULAGLUTIDE
     Indication: TYPE 2 DIABETES MELLITUS
     Dosage: ?          OTHER FREQUENCY:ONCE WEEKLY;?
     Route: 058
  4. CARVEDILOL 25MG BID [Concomitant]
     Dates: start: 20181022
  5. CHLORTHALIDONE 25MG QDAY [Concomitant]
  6. SPIRONOLACTONE 25MG QDAY [Concomitant]
     Dates: start: 20181022
  7. ATORVASTATIN 40MG QHS [Concomitant]
     Dates: start: 20181022

REACTIONS (3)
  - Loss of consciousness [None]
  - Blindness [None]
  - Blood pressure systolic decreased [None]

NARRATIVE: CASE EVENT DATE: 20190821
